FAERS Safety Report 5688577-X (Version None)
Quarter: 2008Q1

REPORT INFORMATION
  Report Type: 
  Country: None (occurrence: None)
  Receive Date: 20080331
  Receipt Date: 20080327
  Transmission Date: 20080703
  Serious: Yes (Other)
  Sender: FDA-Public Use
  Company Number: GB-BRISTOL-MYERS SQUIBB COMPANY-14128045

PATIENT
  Sex: Female

DRUGS (2)
  1. ETOPOSIDE [Suspect]
  2. DACTINOMYCIN [Suspect]

REACTIONS (1)
  - METASTASIS [None]
